FAERS Safety Report 9915596 (Version 1)
Quarter: 2014Q1

REPORT INFORMATION
  Report Type: Spontaneous
  Country: US (occurrence: US)
  Receive Date: 20140221
  Receipt Date: 20140221
  Transmission Date: 20141002
  Serious: Yes (Hospitalization)
  Sender: FDA-Public Use
  Company Number: US-AMGEN-USASP2014011642

PATIENT
  Age: 64 Year
  Sex: Male

DRUGS (2)
  1. ENBREL [Suspect]
     Indication: PSORIATIC ARTHROPATHY
     Dosage: 25 MG, EVERY 5 TO 7 DAYS
     Route: 065
     Dates: start: 2000
  2. ENBREL [Suspect]
     Indication: PSORIASIS

REACTIONS (6)
  - Surgery [Recovered/Resolved]
  - Pain in extremity [Recovered/Resolved]
  - Mobility decreased [Recovered/Resolved]
  - Condition aggravated [Recovered/Resolved]
  - Rash [Not Recovered/Not Resolved]
  - Injection site pain [Recovered/Resolved]
